FAERS Safety Report 8105205-4 (Version None)
Quarter: 2012Q1

REPORT INFORMATION
  Report Type: 
  Country: None (occurrence: None)
  Receive Date: 20120201
  Receipt Date: 20120123
  Transmission Date: 20120608
  Serious: Yes (Hospitalization, Other)
  Sender: FDA-Public Use
  Company Number: US-ASTRAZENECA-2008UW21949

PATIENT
  Age: 71 Year
  Sex: Female
  Weight: 59.9 kg

DRUGS (2)
  1. ARIMIDEX [Suspect]
     Indication: BREAST CANCER
     Route: 048
     Dates: start: 20080603
  2. PAXIL [Concomitant]
     Route: 048

REACTIONS (19)
  - FATIGUE [None]
  - CHEST PAIN [None]
  - TREMOR [None]
  - STRESS [None]
  - ASTHENIA [None]
  - NEOPLASM MALIGNANT [None]
  - SCIATICA [None]
  - WEIGHT DECREASED [None]
  - INSOMNIA [None]
  - DRUG DOSE OMISSION [None]
  - MYALGIA [None]
  - FEELING ABNORMAL [None]
  - APHAGIA [None]
  - MALAISE [None]
  - PAIN IN EXTREMITY [None]
  - INTERVERTEBRAL DISC PROTRUSION [None]
  - GAIT DISTURBANCE [None]
  - BACK PAIN [None]
  - MENTAL DISORDER [None]
